FAERS Safety Report 24431920 (Version 1)
Quarter: 2024Q4

REPORT INFORMATION
  Report Type: Spontaneous
  Country: IN (occurrence: IN)
  Receive Date: 20241014
  Receipt Date: 20241014
  Transmission Date: 20250115
  Serious: Yes (Death)
  Sender: AMGEN
  Company Number: IN-AMGEN-INDSP2024199855

PATIENT
  Age: 55 Year
  Sex: Male

DRUGS (1)
  1. XGEVA [Suspect]
     Active Substance: DENOSUMAB
     Indication: Giant cell tumour of tendon sheath
     Dosage: 120 MILLIGRAM, Q3WK (ONCE EVERY 3 WEEKS) (THREE CYCLES)
     Route: 065

REACTIONS (4)
  - Giant cell tumour of tendon sheath [Fatal]
  - Metastases to lung [Fatal]
  - Metastases to pleura [Fatal]
  - Off label use [Unknown]
